FAERS Safety Report 17405687 (Version 1)
Quarter: 2020Q1

REPORT INFORMATION
  Report Type: Spontaneous
  Country: CN (occurrence: CN)
  Receive Date: 20200212
  Receipt Date: 20200212
  Transmission Date: 20200409
  Serious: Yes (Death, Life-Threatening, Hospitalization, Other)
  Sender: FDA-Public Use
  Company Number: CN-CHEPLA-C20200614

PATIENT
  Age: 29 Year
  Sex: Male

DRUGS (8)
  1. VASOPRESSIN. [Suspect]
     Active Substance: VASOPRESSIN
     Indication: SEPTIC SHOCK
     Dates: start: 201708
  2. IMIPENEM AND CILASTATIN [Suspect]
     Active Substance: CILASTATIN SODIUM\IMIPENEM
     Indication: PANTOEA AGGLOMERANS INFECTION
     Dates: start: 201707
  3. MOXIFLOXACIN. [Suspect]
     Active Substance: MOXIFLOXACIN
     Indication: SEPTIC SHOCK
     Route: 042
     Dates: start: 20170727
  4. OSELTAMIVIR PHOSPHATE. [Suspect]
     Active Substance: OSELTAMIVIR PHOSPHATE
     Indication: SEPTIC SHOCK
     Route: 042
     Dates: start: 20170727
  5. NOREPINEPHRINE. [Suspect]
     Active Substance: NOREPINEPHRINE
     Indication: SEPTIC SHOCK
     Dosage: HIGH DOSE
     Dates: start: 201708
  6. TIGECYCLINE. [Suspect]
     Active Substance: TIGECYCLINE
     Indication: ACINETOBACTER INFECTION
     Dates: start: 201707
  7. IMIPENEM [Suspect]
     Active Substance: IMIPENEM
     Indication: SEPTIC SHOCK
     Route: 042
     Dates: start: 20170727
  8. GANCICLOVIR. [Suspect]
     Active Substance: GANCICLOVIR
     Indication: SEPTIC SHOCK
     Route: 042
     Dates: start: 20170727

REACTIONS (3)
  - Product use in unapproved indication [Unknown]
  - Acute respiratory distress syndrome [Unknown]
  - Septic shock [Fatal]

NARRATIVE: CASE EVENT DATE: 20170727
